FAERS Safety Report 23132495 (Version 1)
Quarter: 2023Q4

REPORT INFORMATION
  Report Type: Report from Study
  Country: FR (occurrence: FR)
  Receive Date: 20231101
  Receipt Date: 20231101
  Transmission Date: 20240110
  Serious: Yes (Hospitalization, Other)
  Sender: FDA-Public Use
  Company Number: FR-CELGENE-FRA-2016036086

PATIENT
  Age: 48 Year
  Sex: Female
  Weight: 51 kg

DRUGS (16)
  1. POMALIDOMIDE [Suspect]
     Active Substance: POMALIDOMIDE
     Indication: Plasma cell myeloma
     Dosage: FREQUENCY:DAY 1-21?CUMULATIVE DOSE: 76MG
     Route: 048
     Dates: start: 20160222, end: 20160307
  2. POMALIDOMIDE [Suspect]
     Active Substance: POMALIDOMIDE
     Dosage: FREQUENCY  DAY 1-21?4 MILLIGRAM
     Route: 048
     Dates: start: 20160323, end: 20160401
  3. DEXAMETHASONE [Suspect]
     Active Substance: DEXAMETHASONE
     Indication: Plasma cell myeloma
     Dosage: FREQUENCY TEXT: NOT PROVIDED?CUMULATIVE DOSE: 320MG
     Route: 048
     Dates: start: 20160223, end: 20160226
  4. DEXAMETHASONE [Suspect]
     Active Substance: DEXAMETHASONE
     Route: 048
     Dates: start: 20160323, end: 20160326
  5. DEXAMETHASONE [Suspect]
     Active Substance: DEXAMETHASONE
     Dosage: FREQUENCY TEXT: DAYS 1, 4, 8 AND 11?5.7143 MILLIGRAM
     Route: 048
     Dates: start: 20160411
  6. BACTRIM [Suspect]
     Active Substance: SULFAMETHOXAZOLE\TRIMETHOPRIM
     Indication: Infection prophylaxis
     Dosage: FREQUENCY TEXT: NOT PROVIDED
     Route: 048
     Dates: start: 20160223, end: 20160314
  7. VALACYCLOVIR HYDROCHLORIDE [Suspect]
     Active Substance: VALACYCLOVIR HYDROCHLORIDE
     Indication: Infection prophylaxis
     Dosage: FREQUENCY TEXT: NOT PROVIDED
     Route: 048
     Dates: start: 20160223, end: 20160314
  8. VALACYCLOVIR HYDROCHLORIDE [Suspect]
     Active Substance: VALACYCLOVIR HYDROCHLORIDE
     Dosage: FREQUENCY TEXT: NOT PROVIDED
     Dates: start: 20160323
  9. VALACYCLOVIR HYDROCHLORIDE [Suspect]
     Active Substance: VALACYCLOVIR HYDROCHLORIDE
     Dosage: FREQUENCY TEXT: NOT PROVIDED
     Dates: start: 20160411
  10. CYCLOPHOSPHAMIDE [Suspect]
     Active Substance: CYCLOPHOSPHAMIDE
     Indication: Plasma cell myeloma
     Dosage: CUMULATIVE DOSE: 900MG
     Route: 048
     Dates: start: 20160222, end: 20160307
  11. CYCLOPHOSPHAMIDE [Suspect]
     Active Substance: CYCLOPHOSPHAMIDE
     Route: 048
     Dates: start: 20160323, end: 20160329
  12. Clamoxyl [Concomitant]
     Indication: Infection prophylaxis
     Dosage: FREQUENCY TEXT: NOT PROVIDED
     Route: 048
     Dates: start: 20160223, end: 20160305
  13. Clamoxyl [Concomitant]
     Dosage: UNIT DOSE : 1 TABLET?FREQUENCY TEXT: NOT PROVIDED
     Route: 048
     Dates: start: 20160314, end: 20160314
  14. LOVENOX [Concomitant]
     Active Substance: ENOXAPARIN SODIUM
     Indication: Thrombosis prophylaxis
     Route: 058
     Dates: start: 20160223
  15. VELCADE [Concomitant]
     Active Substance: BORTEZOMIB
     Indication: Plasma cell myeloma
     Dosage: FREQUENCY TEXT: NOT PROVIDED
  16. VELCADE [Concomitant]
     Active Substance: BORTEZOMIB
     Dosage: FREQUENCY TEXT: 3, DAYS 1, 4 AND 8, 11?.1857 MILLIGRAM/SQ. METER
     Dates: start: 20160411

REACTIONS (2)
  - Drug reaction with eosinophilia and systemic symptoms [Recovered/Resolved]
  - Drug reaction with eosinophilia and systemic symptoms [Recovered/Resolved]

NARRATIVE: CASE EVENT DATE: 20160303
